FAERS Safety Report 19647953 (Version 2)
Quarter: 2021Q4

REPORT INFORMATION
  Report Type: Other
  Country: AU (occurrence: AU)
  Receive Date: 20210802
  Receipt Date: 20211117
  Transmission Date: 20220304
  Serious: No
  Sender: FDA-Public Use
  Company Number: AU-TOLMAR, INC.-21AU027418

PATIENT
  Age: 69 Year
  Sex: Male

DRUGS (1)
  1. ELIGARD [Suspect]
     Active Substance: LEUPROLIDE ACETATE
     Indication: Prostate cancer
     Dosage: 45 MG, Q 6 MONTH
     Dates: start: 20201126

REACTIONS (5)
  - Gastrointestinal disorder [Not Recovered/Not Resolved]
  - Burn of internal organs [Unknown]
  - Hot flush [Not Recovered/Not Resolved]
  - Malaise [Recovered/Resolved]
  - Anosmia [Unknown]

NARRATIVE: CASE EVENT DATE: 20210905
